FAERS Safety Report 15285696 (Version 1)
Quarter: 2018Q3

REPORT INFORMATION
  Report Type: Report from Study
  Country: US (occurrence: US)
  Receive Date: 20180816
  Receipt Date: 20180816
  Transmission Date: 20181010
  Serious: Yes (Other)
  Sender: FDA-Public Use
  Company Number: US-B.I. PHARMACEUTICALS,INC./RIDGEFIELD-2018-BI-041003

PATIENT
  Age: 53 Year
  Sex: Male

DRUGS (2)
  1. JENTADUETO XR [Suspect]
     Active Substance: LINAGLIPTIN\METFORMIN HYDROCHLORIDE
     Indication: DIABETES MELLITUS
     Dosage: 1 TABLET 1 TIME DAILY;  FORM STRENGTH: 5 MG / 1000 MG;TABLET ACTION TAKEN WITH PRODUCT: NOT REPORTED
     Route: 048
     Dates: start: 201807
  2. JARDIANCE [Suspect]
     Active Substance: EMPAGLIFLOZIN
     Indication: DIABETES MELLITUS
     Dosage: 1 TABLET 1 TIME DAILY;  FORM STRENGTH: 10 MG; TABLET ACTION TAKEN WITH PRODUCT: NOT REPORTED
     Route: 048
     Dates: start: 201807

REACTIONS (1)
  - Sarcoma [Not Recovered/Not Resolved]

NARRATIVE: CASE EVENT DATE: 201807
